FAERS Safety Report 9470725 (Version 1)
Quarter: 2013Q3

REPORT INFORMATION
  Report Type: Spontaneous
  Country: US (occurrence: None)
  Receive Date: 20130820
  Receipt Date: 20130820
  Transmission Date: 20140515
  Serious: Yes (Other)
  Sender: FDA-Public Use
  Company Number: None

PATIENT
  Age: 52 Year
  Sex: Female

DRUGS (3)
  1. CARTIA [Suspect]
     Indication: HEART RATE INCREASED
     Route: 048
     Dates: start: 20130514
  2. TOPAXAL (BETA BLOCKER) [Concomitant]
  3. VITMAIN A PALMITATE [Concomitant]

REACTIONS (2)
  - Back pain [None]
  - Arthralgia [None]
